FAERS Safety Report 9031803 (Version 1)
Quarter: 2013Q1

REPORT INFORMATION
  Report Type: Spontaneous
  Country: BR (occurrence: BR)
  Receive Date: 20130124
  Receipt Date: 20130124
  Transmission Date: 20140127
  Serious: Yes (Other)
  Sender: FDA-Public Use
  Company Number: BR-009507513-1301BRA010584

PATIENT
  Sex: Male
  Weight: 78 kg

DRUGS (7)
  1. VICTRELIS [Suspect]
     Indication: HEPATITIS C
     Dosage: 800 MG, TID
     Route: 048
     Dates: start: 201208, end: 20130102
  2. RIBAVIRIN [Suspect]
     Indication: HEPATITIS C
     Dosage: UNK, UNKNOWN
     Route: 048
     Dates: start: 2007
  3. RIBAVIRIN [Suspect]
     Dosage: UNK MG, UNKNOWN
     Route: 048
     Dates: start: 20120715
  4. RIBAVIRIN [Suspect]
     Dosage: 3 PILLS IN A DAY AND 2 IN ANOTHER
     Route: 048
  5. INTERFERON (UNSPECIFIED) [Concomitant]
     Indication: HEPATITIS C
     Dosage: UNK, UNKNOWN
     Route: 065
     Dates: start: 2007
  6. INTERFERON (UNSPECIFIED) [Concomitant]
     Dosage: 0.33 MG/ML, QW
     Route: 065
     Dates: start: 20120715
  7. INTERFERON (UNSPECIFIED) [Concomitant]
     Dosage: 0.33 MICROGRAM/ML, QW
     Route: 065

REACTIONS (8)
  - Encephalopathy [Recovering/Resolving]
  - Hepatic neoplasm [Recovering/Resolving]
  - Skin wound [Recovering/Resolving]
  - Ascites [Recovering/Resolving]
  - Asthenia [Not Recovered/Not Resolved]
  - Weight decreased [Not Recovered/Not Resolved]
  - Anaemia [Recovering/Resolving]
  - Anaemia [Recovered/Resolved]
